FAERS Safety Report 18354886 (Version 2)
Quarter: 2020Q4

REPORT INFORMATION
  Report Type: Spontaneous
  Country: DK (occurrence: DK)
  Receive Date: 20201007
  Receipt Date: 20201022
  Transmission Date: 20210114
  Serious: Yes (Hospitalization, Other)
  Sender: FDA-Public Use
  Company Number: DK-SA-2020SA270220

PATIENT

DRUGS (11)
  1. MABCAMPATH [Suspect]
     Active Substance: ALEMTUZUMAB
     Dosage: 10 MG, QD ON DAY 2
     Route: 041
  2. CLADRIBINE. [Suspect]
     Active Substance: CLADRIBINE
     Indication: T-CELL PROLYMPHOCYTIC LEUKAEMIA
     Dosage: 5 MG/M2 THRICE WEEKLY FOR 5 DAYS EVERY 4 WEEKS
     Route: 058
  3. FLUDARABINE [Concomitant]
     Active Substance: FLUDARABINE PHOSPHATE
     Indication: T-CELL PROLYMPHOCYTIC LEUKAEMIA
  4. MABCAMPATH [Suspect]
     Active Substance: ALEMTUZUMAB
     Indication: T-CELL PROLYMPHOCYTIC LEUKAEMIA
     Dosage: 3 MG, QD ON DAY 1
     Route: 041
  5. MABCAMPATH [Suspect]
     Active Substance: ALEMTUZUMAB
     Dosage: 30 MG, TIW
     Route: 041
  6. VENETOCLAX. [Suspect]
     Active Substance: VENETOCLAX
     Dosage: UNK
  7. CYTARABINE. [Concomitant]
     Active Substance: CYTARABINE
     Indication: T-CELL PROLYMPHOCYTIC LEUKAEMIA
  8. MABCAMPATH [Suspect]
     Active Substance: ALEMTUZUMAB
     Dosage: 30 MG, QD ON DAY 3
     Route: 041
  9. VALPROATE SALT NOT SPECIFIED [Suspect]
     Active Substance: VALPROATE SODIUM
     Indication: T-CELL PROLYMPHOCYTIC LEUKAEMIA
     Dosage: 900 MG, TID
  10. VORINOSTAT [Suspect]
     Active Substance: VORINOSTAT
     Indication: T-CELL PROLYMPHOCYTIC LEUKAEMIA
     Dosage: 400 MG, QD
  11. VENETOCLAX. [Suspect]
     Active Substance: VENETOCLAX
     Indication: T-CELL PROLYMPHOCYTIC LEUKAEMIA
     Dosage: 400 MG, QD, DAILY RAMP UP TO 400 MG, CONTINUOUS TREATMENT

REACTIONS (3)
  - Pyrexia [Unknown]
  - Off label use [Unknown]
  - Neutropenia [Unknown]
